FAERS Safety Report 14188273 (Version 2)
Quarter: 2018Q1

REPORT INFORMATION
  Report Type: Spontaneous
  Country: BR (occurrence: BR)
  Receive Date: 20171114
  Receipt Date: 20180118
  Transmission Date: 20180508
  Serious: Yes (Death, Other)
  Sender: FDA-Public Use
  Company Number: BR-BEH-2017084756

PATIENT
  Age: 61 Year
  Sex: Male

DRUGS (3)
  1. RHOPHYLAC [Suspect]
     Active Substance: HUMAN RHO(D) IMMUNE GLOBULIN
     Dosage: 300 ?G, TOT
     Route: 042
     Dates: start: 20171009, end: 20171009
  2. RHOPHYLAC [Suspect]
     Active Substance: HUMAN RHO(D) IMMUNE GLOBULIN
     Dosage: 300 ?G, TOT
     Route: 042
     Dates: start: 20171016, end: 20171016
  3. RHOPHYLAC [Suspect]
     Active Substance: HUMAN RHO(D) IMMUNE GLOBULIN
     Indication: PROPHYLAXIS AGAINST RH ISOIMMUNISATION
     Dosage: 300 ?G, TOT
     Route: 042
     Dates: start: 20170828, end: 20170828

REACTIONS (3)
  - Drug effect incomplete [Not Recovered/Not Resolved]
  - Death [Fatal]
  - Drug effect incomplete [Not Recovered/Not Resolved]

NARRATIVE: CASE EVENT DATE: 20171009
